APPROVED DRUG PRODUCT: ABSORICA LD
Active Ingredient: ISOTRETINOIN
Strength: 8MG
Dosage Form/Route: CAPSULE;ORAL
Application: N211913 | Product #001
Applicant: SUN PHARMACEUTICAL INDUSTRIES LTD
Approved: Nov 5, 2019 | RLD: Yes | RS: No | Type: RX

PATENTS:
Patent 9700535 | Expires: Aug 4, 2035
Patent 9750711 | Expires: May 29, 2035